FAERS Safety Report 20814176 (Version 2)
Quarter: 2022Q2

REPORT INFORMATION
  Report Type: Spontaneous
  Country: US (occurrence: US)
  Receive Date: 20220511
  Receipt Date: 20220519
  Transmission Date: 20220721
  Serious: Yes (Congenital Anomaly)
  Sender: FDA-Public Use
  Company Number: US-VERTEX PHARMACEUTICALS-2022-006826

PATIENT
  Age: 0 Year
  Weight: 3 kg

DRUGS (8)
  1. TRIKAFTA [Suspect]
     Active Substance: ELEXACAFTOR\IVACAFTOR\TEZACAFTOR
     Indication: Cystic fibrosis
     Dosage: STANDARD ADULT DOSE
     Route: 048
     Dates: start: 202107
  2. HUMALOG [Concomitant]
     Active Substance: INSULIN LISPRO
     Indication: Cystic fibrosis related diabetes
     Dosage: CR 1:50, 15 1:70 ABOVE 150
  3. LANTUS [Concomitant]
     Active Substance: INSULIN GLARGINE
     Indication: Cystic fibrosis related diabetes
     Dosage: 2 UNITS
     Route: 058
  4. CITALOPRAM [Concomitant]
     Active Substance: CITALOPRAM HYDROBROMIDE
     Indication: Depression
     Dosage: UNK
  5. NIFEDIPINE [Concomitant]
     Active Substance: NIFEDIPINE
     Indication: Gestational hypertension
  6. PULMOZYME [Concomitant]
     Active Substance: DORNASE ALFA
     Indication: Cystic fibrosis
     Route: 055
  7. ALBUTEROL [Concomitant]
     Active Substance: ALBUTEROL
  8. PERTZYE [Concomitant]
     Active Substance: PANCRELIPASE AMYLASE\PANCRELIPASE LIPASE\PANCRELIPASE PROTEASE
     Indication: Pancreatic failure
     Dosage: 24000 UNITS CAPSULE

REACTIONS (6)
  - Congenital bowing of long bones [Not Recovered/Not Resolved]
  - Foetal growth restriction [Unknown]
  - Talipes [Not Recovered/Not Resolved]
  - Bone deformity [Unknown]
  - Cyst [Not Recovered/Not Resolved]
  - Ovarian cyst [Not Recovered/Not Resolved]

NARRATIVE: CASE EVENT DATE: 20220328
